FAERS Safety Report 23146489 (Version 1)
Quarter: 2023Q4

REPORT INFORMATION
  Report Type: Spontaneous
  Country: US (occurrence: US)
  Receive Date: 20231105
  Receipt Date: 20231105
  Transmission Date: 20240110
  Serious: Yes (Other)
  Sender: FDA-Public Use
  Company Number: US-EPICPHARMA-US-2023EPCLIT01608

PATIENT
  Age: 60 Year
  Sex: Female

DRUGS (7)
  1. CARBOPLATIN [Suspect]
     Active Substance: CARBOPLATIN
     Indication: Ovarian cancer
     Route: 065
  2. PRIVIGEN [Suspect]
     Active Substance: HUMAN IMMUNOGLOBULIN G
     Indication: Immunodeficiency congenital
     Dosage: 1.54 G/KG/4 WEEKS
     Route: 065
  3. PRIVIGEN [Suspect]
     Active Substance: HUMAN IMMUNOGLOBULIN G
     Dosage: 2.05 G/KG/4 WEEKS
     Route: 065
  4. PRIVIGEN [Suspect]
     Active Substance: HUMAN IMMUNOGLOBULIN G
     Dosage: 1.6 G/KG/4 WEEKS
     Route: 065
  5. PACLITAXEL [Suspect]
     Active Substance: PACLITAXEL
     Indication: Ovarian cancer
     Route: 065
  6. BEVACIZUMAB [Suspect]
     Active Substance: BEVACIZUMAB
     Indication: Ovarian cancer
     Route: 065
  7. PEGFILGRASTIM [Suspect]
     Active Substance: PEGFILGRASTIM
     Indication: Febrile neutropenia
     Route: 065

REACTIONS (22)
  - Mycobacterium avium complex infection [Unknown]
  - Hepatitis viral [Unknown]
  - Neuropathy peripheral [Unknown]
  - Hyperbilirubinaemia [Unknown]
  - Urinary retention postoperative [Unknown]
  - Urinary tract infection [Recovered/Resolved]
  - Klebsiella infection [Unknown]
  - Urinary incontinence [Unknown]
  - Fatigue [Unknown]
  - Headache [Unknown]
  - Dyspnoea [Unknown]
  - Palpitations [Unknown]
  - Anxiety [Unknown]
  - Abdominal pain [Unknown]
  - Bone pain [Unknown]
  - Abdominal discomfort [Unknown]
  - Haemoptysis [Unknown]
  - Constipation [Unknown]
  - Diarrhoea [Unknown]
  - Liver function test increased [Unknown]
  - Cough [Unknown]
  - Nausea [Unknown]
